FAERS Safety Report 11886833 (Version 7)
Quarter: 2017Q4

REPORT INFORMATION
  Report Type: Report from Study
  Country: JP (occurrence: JP)
  Receive Date: 20160104
  Receipt Date: 20171215
  Transmission Date: 20180320
  Serious: Yes (Hospitalization, Other)
  Sender: FDA-Public Use
  Company Number: JP-BRISTOL-MYERS SQUIBB COMPANY-BMS-2015-091921

PATIENT
  Age: 58 Year
  Sex: Male
  Weight: 80 kg

DRUGS (38)
  1. ACETYLSALICYLIC ACID [Concomitant]
     Active Substance: ASPIRIN
     Indication: THROMBOSIS PROPHYLAXIS
     Dosage: 100 MG, SINGLE
     Route: 065
  2. FLUITRAN [Concomitant]
     Active Substance: TRICHLORMETHIAZIDE
     Indication: ATRIAL FIBRILLATION
     Dosage: .5 MG, SINGLE
     Route: 048
     Dates: end: 20140121
  3. ALLOPURINOL. [Concomitant]
     Active Substance: ALLOPURINOL
     Indication: HYPERURICAEMIA
     Dosage: 200 MG, SINGLE
     Route: 048
     Dates: end: 20140218
  4. CELECOX [Concomitant]
     Active Substance: CELECOXIB
     Indication: PERIARTHRITIS
     Dosage: 100 MG, SINGLE
     Route: 048
     Dates: end: 20140522
  5. CELECOX [Concomitant]
     Active Substance: CELECOXIB
     Indication: PRODUCT USED FOR UNKNOWN INDICATION
     Dosage: 100 MG, SINGLE
     Route: 048
     Dates: start: 20141017, end: 20150415
  6. MAGNESIUM OXIDE. [Concomitant]
     Active Substance: MAGNESIUM OXIDE
     Indication: CONSTIPATION
     Dosage: 3 DF, SINGLE
     Route: 048
     Dates: start: 20150303, end: 20150519
  7. APIXABAN [Suspect]
     Active Substance: APIXABAN
     Indication: CEREBROVASCULAR ACCIDENT PROPHYLAXIS
     Dosage: 5 MG, BID
     Route: 048
     Dates: start: 20140115, end: 20150223
  8. ARTIST [Concomitant]
     Active Substance: CARVEDILOL
     Indication: PRODUCT USED FOR UNKNOWN INDICATION
     Dosage: 10 MG, SINGLE
     Route: 048
     Dates: start: 20140122, end: 20140128
  9. DIART [Concomitant]
     Active Substance: AZOSEMIDE
     Indication: ATRIAL FIBRILLATION
     Dosage: 120 MG, SINGLE
     Route: 048
     Dates: end: 20140111
  10. DIART [Concomitant]
     Active Substance: AZOSEMIDE
     Indication: PRODUCT USED FOR UNKNOWN INDICATION
     Dosage: 30 MG, SINGLE
     Route: 048
     Dates: start: 20150209
  11. LANSOPRAZOLE. [Concomitant]
     Active Substance: LANSOPRAZOLE
     Indication: PROPHYLAXIS
     Dosage: 30 MG, SINGLE
     Route: 048
     Dates: end: 20140121
  12. SAMSCA [Concomitant]
     Active Substance: TOLVAPTAN
     Indication: PRODUCT USED FOR UNKNOWN INDICATION
     Dosage: 3.75 MG, SINGLE
     Route: 048
     Dates: start: 20140507
  13. MYSLEE [Concomitant]
     Active Substance: ZOLPIDEM TARTRATE
     Indication: INSOMNIA
     Dosage: 10 MG, SINGLE
     Route: 048
     Dates: start: 20141217, end: 20150116
  14. ARTIST [Concomitant]
     Active Substance: CARVEDILOL
     Indication: ATRIAL FIBRILLATION
     Dosage: 5 MG, SINGLE
     Route: 048
     Dates: end: 20140121
  15. TANATRIL [Concomitant]
     Active Substance: IMIDAPRIL
     Indication: ATRIAL FIBRILLATION
     Dosage: 2.5 MG, SINGLE
     Route: 048
     Dates: end: 20140121
  16. ATORVASTATIN                       /01326102/ [Concomitant]
     Active Substance: ATORVASTATIN
     Indication: DYSLIPIDAEMIA
     Dosage: 10 MG, SINGLE
     Route: 048
     Dates: end: 20140121
  17. TAMSULOSIN HYDROCHLORIDE. [Concomitant]
     Active Substance: TAMSULOSIN HYDROCHLORIDE
     Indication: BENIGN PROSTATIC HYPERPLASIA
     Dosage: .2 MG, SINGLE
     Route: 048
  18. LIPITOR [Concomitant]
     Active Substance: ATORVASTATIN CALCIUM
     Indication: DYSLIPIDAEMIA
     Dosage: 10 MG, SINGLE
     Route: 048
     Dates: start: 20140122
  19. ZYLORIC [Concomitant]
     Active Substance: ALLOPURINOL
     Indication: PRODUCT USED FOR UNKNOWN INDICATION
     Dosage: 100 MG, SINGLE
     Route: 048
     Dates: start: 20140416, end: 20140520
  20. SALAGEN [Concomitant]
     Active Substance: PILOCARPINE HYDROCHLORIDE
     Indication: SJOGREN^S SYNDROME
     Dosage: 15 MG, SINGLE
     Route: 048
     Dates: start: 20150520, end: 20151106
  21. ARTIST [Concomitant]
     Active Substance: CARVEDILOL
     Indication: PRODUCT USED FOR UNKNOWN INDICATION
     Dosage: 40 MG, SINGLE
     Route: 048
     Dates: start: 20140305
  22. DIART [Concomitant]
     Active Substance: AZOSEMIDE
     Indication: PRODUCT USED FOR UNKNOWN INDICATION
     Dosage: 60 MG, SINGLE
     Route: 048
     Dates: start: 20140112, end: 20140218
  23. SAMSCA [Concomitant]
     Active Substance: TOLVAPTAN
     Indication: ATRIAL FIBRILLATION
     Dosage: 7.5 MG, SINGLE
     Route: 048
     Dates: start: 20140112, end: 20140506
  24. ZYLORIC [Concomitant]
     Active Substance: ALLOPURINOL
     Indication: HYPERURICAEMIA
     Dosage: 200 MG, SINGLE
     Route: 048
     Dates: end: 20140415
  25. FEBURIC [Concomitant]
     Active Substance: FEBUXOSTAT
     Indication: HYPERURICAEMIA
     Dosage: 20 MG, SINGLE
     Route: 048
     Dates: start: 20140521
  26. APIXABAN [Suspect]
     Active Substance: APIXABAN
     Indication: PRODUCT USED FOR UNKNOWN INDICATION
     Dosage: 5 MG, BID
     Route: 048
     Dates: start: 20150303
  27. SELARA [Concomitant]
     Active Substance: EPLERENONE
     Indication: ATRIAL FIBRILLATION
     Dosage: 25 MG, SINGLE
     Route: 048
  28. TANATRIL [Concomitant]
     Active Substance: IMIDAPRIL
     Indication: PRODUCT USED FOR UNKNOWN INDICATION
     Dosage: 5 MG, SINGLE
     Route: 048
     Dates: start: 20140122
  29. DIART [Concomitant]
     Active Substance: AZOSEMIDE
     Indication: PRODUCT USED FOR UNKNOWN INDICATION
     Dosage: 30 MG, SINGLE
     Route: 048
     Dates: start: 20140219, end: 20150120
  30. TAKEPRON [Concomitant]
     Active Substance: LANSOPRAZOLE
     Indication: PROPHYLAXIS
     Dosage: 30 MG, SINGLE
     Route: 048
     Dates: start: 20140122, end: 20150310
  31. VICTOZA [Concomitant]
     Active Substance: LIRAGLUTIDE
     Indication: DIABETES MELLITUS
     Dosage: .6 MG, SINGLE
     Route: 058
     Dates: end: 20150223
  32. ACETYLSALICYLIC ACID [Concomitant]
     Active Substance: ASPIRIN
     Indication: PRODUCT USED FOR UNKNOWN INDICATION
     Dosage: 100 MG, SINGLE
     Route: 065
     Dates: start: 20150303
  33. LIPITOR [Concomitant]
     Active Substance: ATORVASTATIN CALCIUM
     Indication: PRODUCT USED FOR UNKNOWN INDICATION
     Dosage: 5 MG, SINGLE
     Route: 048
     Dates: start: 20150415
  34. LENDORMIN [Concomitant]
     Active Substance: BROTIZOLAM
     Indication: INSOMNIA
     Dosage: .5 MG, SINGLE
     Route: 048
     Dates: start: 20140122, end: 20141216
  35. VICTOZA [Concomitant]
     Active Substance: LIRAGLUTIDE
     Indication: PRODUCT USED FOR UNKNOWN INDICATION
     Dosage: .6 MG, SINGLE
     Route: 058
     Dates: start: 20150228
  36. BROTIZOLAM [Concomitant]
     Active Substance: BROTIZOLAM
     Indication: INSOMNIA
     Dosage: .5 MG, SINGLE
     Route: 048
     Dates: end: 20140121
  37. SALIGREN [Concomitant]
     Indication: SJOGREN^S SYNDROME
     Dosage: 90 MG, SINGLE
     Route: 048
     Dates: start: 20150311, end: 20150519
  38. BELSOMRA [Concomitant]
     Active Substance: SUVOREXANT
     Indication: INSOMNIA
     Dosage: 15 MG, SINGLE
     Route: 048
     Dates: start: 20150520, end: 20150603

REACTIONS (6)
  - Diverticulum intestinal haemorrhagic [Recovered/Resolved]
  - Surgery [Unknown]
  - Loss of consciousness [Recovered/Resolved]
  - Myalgia [Recovered/Resolved]
  - Diarrhoea [Recovered/Resolved]
  - Periarthritis [Recovered/Resolved]

NARRATIVE: CASE EVENT DATE: 20140123
